FAERS Safety Report 8159460-5 (Version None)
Quarter: 2012Q1

REPORT INFORMATION
  Report Type: 
  Country: None (occurrence: None)
  Receive Date: 20120223
  Receipt Date: 20120215
  Transmission Date: 20120608
  Serious: Yes (Hospitalization)
  Sender: FDA-Public Use
  Company Number: US-BAYER-201014022NA

PATIENT
  Age: 33 Year
  Sex: Female
  Weight: 52.154 kg

DRUGS (7)
  1. MOTRIN [Concomitant]
     Indication: INFLUENZA
  2. IBUPROFEN (ADVIL) [Concomitant]
     Indication: NASOPHARYNGITIS
  3. YASMIN [Suspect]
     Route: 048
     Dates: start: 19980101
  4. IBUPROFEN (ADVIL) [Concomitant]
     Indication: INFLUENZA
  5. MOTRIN [Concomitant]
     Indication: HEADACHE
  6. IBUPROFEN (ADVIL) [Concomitant]
     Indication: HEADACHE
  7. MOTRIN [Concomitant]
     Indication: NASOPHARYNGITIS

REACTIONS (4)
  - DYSPNOEA [None]
  - BACK PAIN [None]
  - PULMONARY EMBOLISM [None]
  - CHEST PAIN [None]
